FAERS Safety Report 20010774 (Version 1)
Quarter: 2021Q4

REPORT INFORMATION
  Report Type: Spontaneous
  Country: JP (occurrence: JP)
  Receive Date: 20211029
  Receipt Date: 20211029
  Transmission Date: 20220303
  Serious: Yes (Other)
  Sender: FDA-Public Use
  Company Number: JP-GSKNCCC-CASE-01336663_AE-50941

PATIENT
  Sex: Male

DRUGS (1)
  1. INCRUSE ELLIPTA [Suspect]
     Active Substance: UMECLIDINIUM BROMIDE
     Indication: Dyspnoea
     Dosage: UNK, QD
     Dates: start: 2021

REACTIONS (3)
  - Cough [Unknown]
  - Aspiration [Unknown]
  - Sneezing [Unknown]

NARRATIVE: CASE EVENT DATE: 20210901
